FAERS Safety Report 9372921 (Version 1)
Quarter: 2013Q2

REPORT INFORMATION
  Report Type: Spontaneous
  Country: US (occurrence: US)
  Receive Date: 20130627
  Receipt Date: 20130627
  Transmission Date: 20140414
  Serious: No
  Sender: FDA-Public Use
  Company Number: US-009507513-1305USA004381

PATIENT
  Age: 17 Year
  Sex: Female
  Weight: 61.22 kg

DRUGS (2)
  1. CLARITIN [Suspect]
     Indication: HYPERSENSITIVITY
     Dosage: 20 MG, BID
     Route: 048
     Dates: start: 201304
  2. YAZ [Concomitant]
     Indication: CONTRACEPTION
     Dosage: UNK, UNKNOWN

REACTIONS (3)
  - Headache [Recovering/Resolving]
  - Somnolence [Recovering/Resolving]
  - Accidental overdose [Recovering/Resolving]
